FAERS Safety Report 14837963 (Version 1)
Quarter: 2018Q2

REPORT INFORMATION
  Report Type: Spontaneous
  Country: BE (occurrence: BE)
  Receive Date: 20180502
  Receipt Date: 20180502
  Transmission Date: 20180711
  Serious: Yes (Death, Hospitalization)
  Sender: FDA-Public Use
  Company Number: BE-ROCHE-2113212

PATIENT
  Age: 27 Year
  Sex: Female

DRUGS (16)
  1. ANTI-THYMOCYTE GLOBULIN (RABBIT) NOS [Suspect]
     Active Substance: LAPINE T-LYMPHOCYTE IMMUNE GLOBULIN
     Indication: BONE MARROW CONDITIONING REGIMEN
     Dosage: UNK
     Route: 065
  2. VALGANCICLOVIR. [Suspect]
     Active Substance: VALGANCICLOVIR
     Indication: CYTOMEGALOVIRUS INFECTION
     Route: 065
  3. BUSULFAN. [Suspect]
     Active Substance: BUSULFAN
     Indication: BONE MARROW CONDITIONING REGIMEN
     Dosage: UNK
     Route: 065
  4. URSODEOXYCHOLIC ACID [Concomitant]
     Active Substance: URSODIOL
  5. CEFTAZIDIME. [Concomitant]
     Active Substance: CEFTAZIDIME
     Route: 065
  6. CYCLOPHOSPHAMIDE. [Suspect]
     Active Substance: CYCLOPHOSPHAMIDE
     Indication: BONE MARROW CONDITIONING REGIMEN
     Dosage: UNK
     Route: 050
  7. IMMUNE GLOBULIN [Concomitant]
     Active Substance: HUMAN IMMUNOGLOBULIN G
     Indication: SUPPORTIVE CARE
     Route: 065
  8. METRONIDAZOLE. [Concomitant]
     Active Substance: METRONIDAZOLE
     Route: 065
  9. TACROLIMUS. [Suspect]
     Active Substance: TACROLIMUS
     Indication: PROPHYLAXIS AGAINST GRAFT VERSUS HOST DISEASE
     Dosage: UNK
     Route: 065
  10. TAZOCILLIN [Concomitant]
     Active Substance: PIPERACILLIN SODIUM\TAZOBACTAM SODIUM
  11. FLUDARABINE [Suspect]
     Active Substance: FLUDARABINE PHOSPHATE
     Indication: BONE MARROW CONDITIONING REGIMEN
     Dosage: UNK
     Route: 065
  12. FOSCAVIR [Concomitant]
     Active Substance: FOSCARNET SODIUM
  13. MYCOPHENOLIC ACID. [Suspect]
     Active Substance: MYCOPHENOLIC ACID
     Indication: PROPHYLAXIS AGAINST GRAFT VERSUS HOST DISEASE
     Dosage: UNK
     Route: 065
  14. POSACONAZOLE [Suspect]
     Active Substance: POSACONAZOLE
     Indication: ORAL CANDIDIASIS
     Dosage: UNK
     Route: 065
  15. CYCLOPHOSPHAMIDE. [Suspect]
     Active Substance: CYCLOPHOSPHAMIDE
     Indication: BONE MARROW CONDITIONING REGIMEN
     Route: 065
  16. CASPOFUNGIN [Concomitant]
     Active Substance: CASPOFUNGIN

REACTIONS (16)
  - Cholestasis [Fatal]
  - Oral candidiasis [Fatal]
  - Disseminated intravascular coagulation [Fatal]
  - Hepatitis [Fatal]
  - Bone marrow toxicity [Fatal]
  - Venous haemorrhage [Fatal]
  - Cytomegalovirus infection [Fatal]
  - Toxicity to various agents [Fatal]
  - Staphylococcal sepsis [Fatal]
  - Liver function test abnormal [Fatal]
  - Neutropenia [Fatal]
  - Hepatic necrosis [Fatal]
  - Hepatocellular injury [Fatal]
  - Hepatic failure [Fatal]
  - Adenoviral hepatitis [Fatal]
  - Pancytopenia [Fatal]
